FAERS Safety Report 21166284 (Version 1)
Quarter: 2022Q3

REPORT INFORMATION
  Report Type: Spontaneous
  Country: US (occurrence: None)
  Receive Date: 20220802
  Receipt Date: 20220802
  Transmission Date: 20221026
  Serious: Yes (Other)
  Sender: FDA-Public Use
  Company Number: None

PATIENT
  Age: 71 Year
  Sex: Female
  Weight: 65.52 kg

DRUGS (2)
  1. RISPERIDONE [Suspect]
     Active Substance: RISPERIDONE
     Dosage: FREQUENCY : TWICE A DAY;?
     Route: 048
  2. ALPRAZOLAM [Concomitant]
     Active Substance: ALPRAZOLAM
     Dates: start: 20220325, end: 20220405

REACTIONS (5)
  - Musculoskeletal stiffness [None]
  - Posture abnormal [None]
  - Muscle tightness [None]
  - Jaw disorder [None]
  - Musculoskeletal disorder [None]

NARRATIVE: CASE EVENT DATE: 20220406
